FAERS Safety Report 16727269 (Version 1)
Quarter: 2019Q3

REPORT INFORMATION
  Report Type: Spontaneous
  Country: US (occurrence: US)
  Receive Date: 20190822
  Receipt Date: 20190822
  Transmission Date: 20191005
  Serious: Yes (Other)
  Sender: FDA-Public Use
  Company Number: US-SA-2019SA226836

PATIENT
  Age: 42 Year
  Sex: Male

DRUGS (2)
  1. RANITIDINE. [Suspect]
     Active Substance: RANITIDINE
     Dosage: 150 MG, BID
  2. ACETAMINOPHEN. [Suspect]
     Active Substance: ACETAMINOPHEN
     Dosage: FOUR TO SIX 325-MG TABLETS PER DAY

REACTIONS (4)
  - Hepatotoxicity [Recovered/Resolved]
  - Blood alkaline phosphatase increased [Recovered/Resolved]
  - Chromaturia [Unknown]
  - Aspartate aminotransferase increased [Recovered/Resolved]
